FAERS Safety Report 4847352-6 (Version None)
Quarter: 2005Q4

REPORT INFORMATION
  Report Type: 
  Country: None (occurrence: None)
  Receive Date: 20051202
  Receipt Date: 20051124
  Transmission Date: 20060501
  Serious: Yes (Death, Life-Threatening, Hospitalization)
  Sender: FDA-Public Use
  Company Number: 2005-00721

PATIENT
  Age: 58 Year
  Sex: Male
  Weight: 80 kg

DRUGS (11)
  1. VELCADE [Suspect]
     Indication: MULTIPLE MYELOMA
     Dosage: 2.00 MG IV BOLUS
     Route: 040
     Dates: start: 20050317, end: 20050324
  2. NORVASC [Concomitant]
  3. ALLOPURINOL [Concomitant]
  4. LASIX [Concomitant]
  5. NEXIUM [Concomitant]
  6. VERGENTAN (ALIZAPRIDE HYDROCHLORIDE) [Concomitant]
  7. METOPROLOL SUCCINATE [Concomitant]
  8. OMEPRAZOLE [Concomitant]
  9. TRAMADOL HCL [Concomitant]
  10. HYDROMORPHONE [Concomitant]
  11. METOPROLOL [Concomitant]

REACTIONS (32)
  - ACIDOSIS [None]
  - ALANINE AMINOTRANSFERASE INCREASED [None]
  - ANAEMIA [None]
  - ASPARTATE AMINOTRANSFERASE INCREASED [None]
  - CARDIAC FAILURE [None]
  - CARDIO-RESPIRATORY ARREST [None]
  - COAGULATION TEST ABNORMAL [None]
  - CONDITION AGGRAVATED [None]
  - DEHYDRATION [None]
  - DISEASE PROGRESSION [None]
  - DYSPNOEA [None]
  - HAEMODIALYSIS [None]
  - HEPATIC FAILURE [None]
  - HYPERTENSION [None]
  - HYPOTENSION [None]
  - HYPOVOLAEMIA [None]
  - INFECTION [None]
  - LABORATORY TEST ABNORMAL [None]
  - LEUKOPENIA [None]
  - MONOCLONAL IMMUNOGLOBULIN PRESENT [None]
  - MULTI-ORGAN FAILURE [None]
  - MUSCULOSKELETAL CHEST PAIN [None]
  - NAUSEA [None]
  - PLASMACYTOMA [None]
  - PYREXIA [None]
  - RENAL FAILURE [None]
  - RESPIRATORY FAILURE [None]
  - RESPIRATORY GAS EXCHANGE DISORDER [None]
  - SHOCK [None]
  - SYSTEMIC INFLAMMATORY RESPONSE SYNDROME [None]
  - THROMBOCYTOPENIA [None]
  - VOMITING [None]
